FAERS Safety Report 9343928 (Version 1)
Quarter: 2013Q2

REPORT INFORMATION
  Report Type: Report from Study
  Country: US (occurrence: US)
  Receive Date: 20130612
  Receipt Date: 20130612
  Transmission Date: 20140414
  Serious: Yes (Hospitalization)
  Sender: FDA-Public Use
  Company Number: US-ROCHE-1231620

PATIENT
  Sex: 0

DRUGS (2)
  1. CEFTRIAXONE [Suspect]
     Indication: PRODUCT USED FOR UNKNOWN INDICATION
     Route: 065
  2. MIDAZOLAM ROCHE UNSPEC. [Suspect]
     Indication: PRODUCT USED FOR UNKNOWN INDICATION
     Route: 065

REACTIONS (6)
  - Hypotension [Unknown]
  - Hyperbilirubinaemia [Unknown]
  - Hepatorenal failure [Unknown]
  - Convulsion [Unknown]
  - Investigation abnormal [Unknown]
  - Tachycardia [Unknown]
